FAERS Safety Report 7812400-8 (Version None)
Quarter: 2011Q4

REPORT INFORMATION
  Report Type: 
  Country: None (occurrence: None)
  Receive Date: 20111013
  Receipt Date: 20111004
  Transmission Date: 20120403
  Serious: Yes (Other)
  Sender: FDA-Public Use
  Company Number: CA-JNJFOC-20111004557

PATIENT
  Sex: Male
  Weight: 95 kg

DRUGS (4)
  1. REMICADE [Suspect]
     Indication: CROHN'S DISEASE
     Route: 042
     Dates: start: 20090303
  2. HYDROCHLOROTHIAZIDE [Concomitant]
  3. FERROUS SULFATE TAB [Concomitant]
  4. AZATHIOPRINE [Concomitant]
     Route: 048

REACTIONS (1)
  - ATRIAL FIBRILLATION [None]
